FAERS Safety Report 8277448-0 (Version None)
Quarter: 2012Q2

REPORT INFORMATION
  Report Type: 
  Country: None (occurrence: None)
  Receive Date: 20120412
  Receipt Date: 20120409
  Transmission Date: 20120825
  Serious: Yes (Hospitalization)
  Sender: FDA-Public Use
  Company Number: GB-BAYER-2012-034932

PATIENT
  Age: 20 Year
  Sex: Male

DRUGS (1)
  1. PRAZIQUANTEL [Suspect]
     Indication: SCHISTOSOMIASIS
     Dosage: 40 MG/KG, UNK

REACTIONS (2)
  - GENERAL PHYSICAL HEALTH DETERIORATION [None]
  - PYREXIA [None]
